FAERS Safety Report 11953233 (Version 2)
Quarter: 2016Q1

REPORT INFORMATION
  Report Type: Spontaneous
  Country: DK (occurrence: DK)
  Receive Date: 20160126
  Receipt Date: 20160202
  Transmission Date: 20160526
  Serious: Yes (Life-Threatening, Hospitalization, Disabling)
  Sender: FDA-Public Use
  Company Number: DK-PFIZER INC-2016034515

PATIENT
  Age: 41 Year
  Sex: Female

DRUGS (3)
  1. MAGNYL /00002701/ [Concomitant]
     Active Substance: ASPIRIN
  2. IMIGRAN /01044801/ [Concomitant]
     Active Substance: SUMATRIPTAN
     Indication: MIGRAINE
     Dosage: UNK UNK, AS NEEDED
  3. CYTOTEC [Suspect]
     Active Substance: MISOPROSTOL
     Indication: ABORTION
     Dosage: DOSE: 3 TABLETS. STRENGTH: 0.2 MG.
     Route: 048
     Dates: start: 20160112

REACTIONS (11)
  - Arteriospasm coronary [Unknown]
  - Cardiac arrest [Recovered/Resolved with Sequelae]
  - Ventricular hypokinesia [Unknown]
  - Chest pain [Unknown]
  - Torsade de pointes [Unknown]
  - Bundle branch block right [Recovered/Resolved]
  - Stress cardiomyopathy [Unknown]
  - Ejection fraction decreased [Recovering/Resolving]
  - Product use issue [Unknown]
  - Loss of consciousness [Recovered/Resolved]
  - Ventricular tachycardia [Unknown]

NARRATIVE: CASE EVENT DATE: 20160112
